FAERS Safety Report 7525060-0 (Version None)
Quarter: 2011Q2

REPORT INFORMATION
  Report Type: 
  Country: None (occurrence: None)
  Receive Date: 20110606
  Receipt Date: 20110523
  Transmission Date: 20111010
  Serious: No
  Sender: FDA-Public Use
  Company Number: US-ELI_LILLY_AND_COMPANY-US201104001953

PATIENT
  Sex: Female

DRUGS (12)
  1. SPIRONOLACTONE [Concomitant]
     Dosage: 25 MG, QD
  2. ENABLEX                            /01760402/ [Concomitant]
     Dosage: 15 MG, QD
  3. FORTEO [Suspect]
     Indication: OSTEOPOROSIS
     Dosage: 20 UG, QD
     Route: 058
     Dates: start: 20100921
  4. ALTACE [Concomitant]
     Dosage: 5 MG, QD
  5. MAGNESIUM SULFATE [Concomitant]
  6. MULTI-VITAMIN [Concomitant]
     Dosage: UNK, QD
  7. ZINC [Concomitant]
  8. FORTEO [Suspect]
     Dosage: 20 UG, QD
     Dates: end: 20110423
  9. CALCIUM CARBONATE [Concomitant]
  10. PERCOCET [Concomitant]
     Dosage: 1 DF, EVERY 4 HRS
  11. FISH OIL [Concomitant]
     Dosage: 3000 MG, QD
  12. VITAMIN D [Concomitant]
     Dosage: 1000 UL, QD

REACTIONS (6)
  - OEDEMA PERIPHERAL [None]
  - BLADDER DISORDER [None]
  - NAUSEA [None]
  - BLISTER [None]
  - MUSCLE SPASMS [None]
  - CELLULITIS [None]
